FAERS Safety Report 5013314-1 (Version None)
Quarter: 2006Q2

REPORT INFORMATION
  Report Type: 
  Country: None (occurrence: None)
  Receive Date: 20060530
  Receipt Date: 20060410
  Transmission Date: 20061013
  Serious: No
  Sender: FDA-Public Use
  Company Number: US-GLAXOSMITHKLINE-A0601147A

PATIENT
  Age: 52 Year
  Sex: Female

DRUGS (2)
  1. WELLBUTRIN XL [Suspect]
     Dosage: 150MG PER DAY
     Route: 048
     Dates: start: 20060408, end: 20060408
  2. NO CONCURRENT MEDICATION [Concomitant]

REACTIONS (4)
  - AGITATION [None]
  - ANXIETY [None]
  - INSOMNIA [None]
  - NICOTINE DEPENDENCE [None]
